FAERS Safety Report 6728746-0 (Version None)
Quarter: 2010Q2

REPORT INFORMATION
  Report Type: 
  Country: None (occurrence: None)
  Receive Date: 20100517
  Receipt Date: 20100507
  Transmission Date: 20101027
  Serious: Yes (Other)
  Sender: FDA-Public Use
  Company Number: US-AMGEN-KDL411130

PATIENT
  Sex: Female

DRUGS (2)
  1. ENBREL [Suspect]
     Indication: RHEUMATOID ARTHRITIS
     Route: 058
     Dates: start: 20020101
  2. HUMIRA [Concomitant]
     Dates: start: 20090701

REACTIONS (12)
  - ARTHRALGIA [None]
  - CHILLS [None]
  - DELIRIUM [None]
  - DEPRESSION [None]
  - DRUG INEFFECTIVE [None]
  - HEADACHE [None]
  - MOBILITY DECREASED [None]
  - PAIN [None]
  - RHEUMATOID ARTHRITIS [None]
  - TENDONITIS [None]
  - THERAPEUTIC RESPONSE DECREASED [None]
  - VOMITING [None]
